FAERS Safety Report 6793369-4 (Version None)
Quarter: 2010Q2

REPORT INFORMATION
  Report Type: 
  Country: None (occurrence: None)
  Receive Date: 20100624
  Receipt Date: 20100212
  Transmission Date: 20101027
  Serious: Yes (Death)
  Sender: FDA-Public Use
  Company Number: US-MYLANLABS-2010S1000104

PATIENT
  Age: 67 Year
  Sex: Male

DRUGS (9)
  1. CLOZAPINE [Suspect]
     Route: 048
     Dates: start: 20090623
  2. MORPHINE [Concomitant]
  3. ZOLOFT [Concomitant]
  4. HYDROCODONE [Concomitant]
  5. LACTULOSE [Concomitant]
  6. ALBUTEROL [Concomitant]
  7. ATROVENT [Concomitant]
  8. CARBIDOPA-LEVODOPA [Concomitant]
  9. ANTIBIOTICS [Concomitant]

REACTIONS (1)
  - DEATH [None]
